FAERS Safety Report 5826330-4 (Version None)
Quarter: 2008Q3

REPORT INFORMATION
  Report Type: 
  Country: None (occurrence: None)
  Receive Date: 20080729
  Receipt Date: 20080721
  Transmission Date: 20090109
  Serious: Yes (Hospitalization, Other)
  Sender: FDA-Public Use
  Company Number: IN-PFIZER INC-2008061415

PATIENT
  Age: 25 Year
  Sex: Male

DRUGS (1)
  1. ZIPRASIDONE (CAPS) [Suspect]
     Indication: SCHIZOPHRENIA, PARANOID TYPE
     Dosage: DAILY DOSE:120MG

REACTIONS (3)
  - DYSTONIA [None]
  - OBSESSIVE-COMPULSIVE DISORDER [None]
  - SCHIZOPHRENIA [None]
